FAERS Safety Report 21893908 (Version 1)
Quarter: 2023Q1

REPORT INFORMATION
  Report Type: Spontaneous
  Country: US (occurrence: US)
  Receive Date: 20230121
  Receipt Date: 20230121
  Transmission Date: 20230418
  Serious: No
  Sender: FDA-Public Use
  Company Number: US-AUROBINDO-AUR-APL-2022-038737

PATIENT
  Age: 47 Year
  Sex: Female
  Weight: 78 kg

DRUGS (12)
  1. CLOZAPINE [Suspect]
     Active Substance: CLOZAPINE
     Indication: Antipsychotic therapy
     Dosage: 25 MILLIGRAM (0.5 TABS FOR 2 DAYS)
     Route: 065
     Dates: start: 20220810
  2. CLOZAPINE [Suspect]
     Active Substance: CLOZAPINE
     Indication: Hallucination
     Dosage: 25 MILLIGRAM (FOR 2 DAYS)
     Route: 048
  3. CLOZAPINE [Suspect]
     Active Substance: CLOZAPINE
     Indication: Psychotic disorder
     Dosage: 50 MILLIGRAM (FOR 2 DAYS)
     Route: 048
  4. CLOZAPINE [Suspect]
     Active Substance: CLOZAPINE
     Indication: Paranoia
     Dosage: 75 MILLIGRAM (FOR 2 DAYS)
     Route: 065
  5. CLOZAPINE [Suspect]
     Active Substance: CLOZAPINE
     Dosage: 100 MILLIGRAM (FOR 2 DAYS)
     Route: 065
  6. CLOZAPINE [Suspect]
     Active Substance: CLOZAPINE
     Dosage: 125 MILLIGRAM (FOR 2 DAYS)
     Route: 065
  7. CLOZAPINE [Suspect]
     Active Substance: CLOZAPINE
     Dosage: 150 MILLIGRAM (FOR 2 DAYS)
     Route: 065
     Dates: end: 20221113
  8. CLONIDINE HYDROCHLORIDE [Concomitant]
     Active Substance: CLONIDINE HYDROCHLORIDE
     Indication: Anxiety
     Dosage: 0.1 MILLIGRAM, TWO TIMES A DAY(0.1 MG PO BID)
     Route: 048
  9. CLONIDINE HYDROCHLORIDE [Concomitant]
     Active Substance: CLONIDINE HYDROCHLORIDE
     Indication: Impulsive behaviour
  10. CYMBALTA [Concomitant]
     Active Substance: DULOXETINE HYDROCHLORIDE
     Indication: Depression
     Dosage: 60 MILLIGRAM, TWO TIMES A DAY(60 MG PO BID)
     Route: 048
  11. CYMBALTA [Concomitant]
     Active Substance: DULOXETINE HYDROCHLORIDE
     Indication: Anxiety
  12. LAMICTAL [Concomitant]
     Active Substance: LAMOTRIGINE
     Indication: Product used for unknown indication
     Dosage: UNK
     Route: 065
     Dates: start: 20220126, end: 20220606

REACTIONS (4)
  - Weight increased [Not Recovered/Not Resolved]
  - Somnolence [Not Recovered/Not Resolved]
  - Rash macular [Not Recovered/Not Resolved]
  - Fatigue [Not Recovered/Not Resolved]

NARRATIVE: CASE EVENT DATE: 20220720
